FAERS Safety Report 25072809 (Version 2)
Quarter: 2025Q2

REPORT INFORMATION
  Report Type: Spontaneous
  Country: IT (occurrence: IT)
  Receive Date: 20250313
  Receipt Date: 20250616
  Transmission Date: 20250716
  Serious: Yes (Hospitalization, Other)
  Sender: RANBAXY
  Company Number: IT-MINISAL02-1021276

PATIENT
  Age: 67 Year
  Sex: Male
  Weight: 120 kg

DRUGS (2)
  1. LENALIDOMIDE [Suspect]
     Active Substance: LENALIDOMIDE
     Indication: Plasma cell myeloma
     Route: 048
     Dates: start: 20241219
  2. DEXAMETHASONE [Concomitant]
     Active Substance: DEXAMETHASONE
     Indication: Plasma cell myeloma
     Route: 048
     Dates: start: 20241219

REACTIONS (1)
  - Stevens-Johnson syndrome [Recovering/Resolving]

NARRATIVE: CASE EVENT DATE: 20241228
